FAERS Safety Report 22308240 (Version 1)
Quarter: 2023Q2

REPORT INFORMATION
  Report Type: Spontaneous
  Country: US (occurrence: US)
  Receive Date: 20230511
  Receipt Date: 20230511
  Transmission Date: 20230722
  Serious: Yes (Death, Other)
  Sender: FDA-Public Use
  Company Number: US-drreddys-LIT/USA/23/0164793

PATIENT
  Age: 42 Year
  Sex: Male

DRUGS (2)
  1. IMATINIB [Suspect]
     Active Substance: IMATINIB
     Indication: Metastases to liver
  2. NILOTINIB [Suspect]
     Active Substance: NILOTINIB
     Indication: Metastases to liver

REACTIONS (2)
  - Metastases to liver [Fatal]
  - Drug ineffective for unapproved indication [Unknown]
